FAERS Safety Report 4818633-7 (Version None)
Quarter: 2005Q4

REPORT INFORMATION
  Report Type: 
  Country: None (occurrence: None)
  Receive Date: 20051101
  Receipt Date: 20051027
  Transmission Date: 20060501
  Serious: Yes (Other)
  Sender: FDA-Public Use
  Company Number: 200411642GDS

PATIENT
  Age: 35 Year
  Sex: Female
  Weight: 68 kg

DRUGS (2)
  1. MOXIFLOXACIN [Suspect]
     Indication: PNEUMONIA
     Dosage: 400 MG, TOTAL DIALY, INTRAVENOUS
     Route: 042
     Dates: start: 20040511
  2. AUGMENTIN '125' [Concomitant]

REACTIONS (2)
  - DRUG TOXICITY [None]
  - HYPERSENSITIVITY [None]
